FAERS Safety Report 9945007 (Version 1)
Quarter: 2014Q1

REPORT INFORMATION
  Report Type: Report from Study
  Country: US (occurrence: US)
  Receive Date: 20140303
  Receipt Date: 20140303
  Transmission Date: 20141002
  Serious: No
  Sender: FDA-Public Use
  Company Number: US-ABBVIE-13P-163-1049062-00

PATIENT
  Age: 36 Year
  Sex: Female

DRUGS (4)
  1. HUMIRA [Suspect]
     Indication: CROHN^S DISEASE
     Dates: start: 20120515
  2. IMURAN [Concomitant]
     Indication: CROHN^S DISEASE
  3. ZOLOFT [Concomitant]
     Indication: ANXIETY
  4. VALTREX [Concomitant]
     Indication: HERPES VIRUS INFECTION

REACTIONS (1)
  - Urticaria [Not Recovered/Not Resolved]
